FAERS Safety Report 8545414-3 (Version None)
Quarter: 2012Q3

REPORT INFORMATION
  Report Type: 
  Country: None (occurrence: None)
  Receive Date: 20120727
  Receipt Date: 20111102
  Transmission Date: 20120928
  Serious: No
  Sender: FDA-Public Use
  Company Number: US-ASTRAZENECA-2011SE66569

PATIENT
  Age: 35 Year
  Sex: Female
  Weight: 77.1 kg

DRUGS (13)
  1. ZOMIG [Interacting]
     Route: 048
  2. PROPRANOLOL [Concomitant]
  3. CELEXA [Interacting]
     Dates: end: 20111101
  4. HYOSCYAMINE [Concomitant]
     Indication: IRRITABLE BOWEL SYNDROME
  5. SEROQUEL [Suspect]
     Indication: BIPOLAR II DISORDER
     Route: 048
     Dates: start: 20080101
  6. WELLBUTRIN [Concomitant]
  7. VALTREX [Concomitant]
  8. PREVACID [Concomitant]
  9. XANAX [Concomitant]
  10. PHENERGAN HCL [Concomitant]
     Indication: NAUSEA
     Dosage: FREQUENCY PRN (AS REQUIRED)
  11. TOPAMAX [Concomitant]
  12. ZANTAC [Concomitant]
  13. PHENERGAN HCL [Concomitant]
     Indication: HEADACHE
     Dosage: FREQUENCY PRN (AS REQUIRED)

REACTIONS (4)
  - DISORIENTATION [None]
  - DRUG INTERACTION [None]
  - HEADACHE [None]
  - MIGRAINE [None]
